FAERS Safety Report 23117169 (Version 1)
Quarter: 2023Q4

REPORT INFORMATION
  Report Type: Spontaneous
  Country: FR (occurrence: FR)
  Receive Date: 20231027
  Receipt Date: 20231027
  Transmission Date: 20240110
  Serious: Yes (Other)
  Sender: FDA-Public Use
  Company Number: FR-WOODWARD-2023-FR-000175

PATIENT
  Age: 59 Year
  Sex: Female

DRUGS (9)
  1. RABEPRAZOLE SODIUM [Suspect]
     Active Substance: RABEPRAZOLE SODIUM
     Indication: Gastrooesophageal reflux disease
     Dosage: 20.0 MILLIGRAM(S) (20 MILLIGRAM(S), 1 IN 1 DAY)
     Route: 048
     Dates: end: 20230916
  2. BISOPROLOL [Concomitant]
     Active Substance: BISOPROLOL\BISOPROLOL FUMARATE
     Dosage: UNKNOWN
     Route: 065
  3. MONTELUKAST SODIUM [Suspect]
     Active Substance: MONTELUKAST SODIUM
     Dosage: 1.0 DOSAGE FORM (1 DOSAGE FORM, 1 IN 1 DAY)
     Route: 055
     Dates: end: 20230916
  4. VITAMIN B12 [Suspect]
     Active Substance: CYANOCOBALAMIN
     Dosage: (1 DOSAGE FORM, 1 IN 1 TOTAL)
     Route: 048
     Dates: start: 20230916, end: 20230916
  5. THIAMINE HYDROCHLORIDE [Suspect]
     Active Substance: THIAMINE HYDROCHLORIDE
     Dosage: 250.0 MILLIGRAM(S) (250 MILLIGRAM(S), 1 IN 1 DAY)
     Route: 048
     Dates: end: 20230916
  6. FOLIC ACID [Suspect]
     Active Substance: FOLIC ACID
     Dosage: 10.0 MILLIGRAM(S) (10 MILLIGRAM(S), 1 IN 1 DAY)
     Route: 048
     Dates: end: 20230916
  7. VITAMINS [Suspect]
     Active Substance: VITAMINS
     Dosage: 2.0 DOSAGE FORM (2 DOSAGE FORM, 1 IN 1 DAY)
     Route: 048
     Dates: end: 20230916
  8. CALCIUM CARBONATE\CHOLECALCIFEROL [Suspect]
     Active Substance: CALCIUM CARBONATE\CHOLECALCIFEROL
     Dosage: 2.0 DOSAGE FORM (2 DOSAGE FORM, 1 IN 1 DAY)
     Route: 048
     Dates: end: 20230916
  9. CHOLECALCIFEROL [Concomitant]
     Active Substance: CHOLECALCIFEROL
     Dosage: UNKNOWN
     Route: 065

REACTIONS (1)
  - Rash pruritic [Unknown]

NARRATIVE: CASE EVENT DATE: 20230916
